FAERS Safety Report 4615003-1 (Version None)
Quarter: 2005Q1

REPORT INFORMATION
  Report Type: 
  Country: None (occurrence: None)
  Receive Date: 20050315
  Receipt Date: 20050311
  Transmission Date: 20050727
  Serious: Yes (Hospitalization)
  Sender: FDA-Public Use
  Company Number: 2005023410

PATIENT
  Age: 66 Year
  Sex: Female
  Weight: 82.3 kg

DRUGS (5)
  1. PREGABALIN (PREGABALIN) [Suspect]
     Indication: FIBROMYALGIA
     Dosage: 300 MG (150 MG, 2 IN 1 D), ORAL
     Route: 048
     Dates: start: 20041129, end: 20050131
  2. ATORVASTATIN CALCIUM [Concomitant]
  3. ASPIRIN [Concomitant]
  4. TOLTERODINE TARTRATE [Concomitant]
  5. CENTRUM (MINERALS NOS, VITAMINS NOS) [Concomitant]

REACTIONS (9)
  - BRAIN NATRIURETIC PEPTIDE INCREASED [None]
  - DYSPNOEA [None]
  - ELECTROCARDIOGRAM ST SEGMENT ABNORMAL [None]
  - ELECTROCARDIOGRAM T WAVE ABNORMAL [None]
  - FIBRIN D DIMER INCREASED [None]
  - PCO2 DECREASED [None]
  - PO2 INCREASED [None]
  - PULMONARY EMBOLISM [None]
  - SINUS TACHYCARDIA [None]
